FAERS Safety Report 8606592 (Version 2)
Quarter: 2013Q4

REPORT INFORMATION
  Report Type: Spontaneous
  Country: US (occurrence: US)
  Receive Date: 20120608
  Receipt Date: 20131217
  Transmission Date: 20140711
  Serious: No
  Sender: FDA-Public Use
  Company Number: US-ASTRAZENECA-2011SE50790

PATIENT
  Age: 57 Year
  Sex: Female
  Weight: 136.1 kg

DRUGS (13)
  1. NEXIUM [Suspect]
     Indication: GASTROOESOPHAGEAL REFLUX DISEASE
     Route: 048
     Dates: start: 2009, end: 20131114
  2. PULMICORT [Suspect]
     Indication: ASTHMA
     Dosage: 1 TO 2 PUFFS DAILY
     Route: 055
     Dates: start: 1999
  3. PRILOSEC OTC [Suspect]
     Indication: GASTROOESOPHAGEAL REFLUX DISEASE
     Dosage: UNKNOWN DAILY
     Route: 048
     Dates: start: 2003, end: 2009
  4. AMITRIPTYLINE [Suspect]
     Route: 065
  5. ZANTAC [Concomitant]
     Indication: GASTROOESOPHAGEAL REFLUX DISEASE
     Route: 048
  6. SINGULAIR [Concomitant]
     Indication: MULTIPLE ALLERGIES
     Route: 048
     Dates: start: 2002
  7. FLONASE [Concomitant]
     Indication: MULTIPLE ALLERGIES
     Dosage: 1 SQUIRT EACH NOSTRI BID
     Route: 055
     Dates: start: 2002
  8. GABAPENTIN [Concomitant]
     Indication: PAIN
     Route: 048
     Dates: start: 201303
  9. KLORCON [Concomitant]
     Indication: BLOOD POTASSIUM ABNORMAL
     Route: 048
     Dates: start: 1986
  10. LEVOTHYROXINE [Concomitant]
     Indication: THYROID DISORDER
     Dosage: 50 MCG DAILY
     Route: 048
     Dates: start: 2011
  11. TORSEMIDE [Concomitant]
     Indication: DIURETIC THERAPY
     Dosage: 20 MG 3 DAYS A WEEK
     Route: 048
     Dates: start: 1993
  12. LOSARTAN [Concomitant]
     Indication: BLOOD PRESSURE ABNORMAL
     Route: 048
     Dates: start: 1993
  13. VICODIN [Concomitant]
     Indication: PAIN
     Dosage: 5 500 BID
     Route: 048
     Dates: start: 2003

REACTIONS (13)
  - Asthma [Unknown]
  - Gastrooesophageal reflux disease [Unknown]
  - Asthma [Unknown]
  - Dysphonia [Unknown]
  - Asthma [Unknown]
  - Fibromyalgia [Unknown]
  - Swelling [Unknown]
  - Sleep phase rhythm disturbance [Unknown]
  - Rash [Unknown]
  - Insomnia [Unknown]
  - Drug ineffective [Unknown]
  - Drug dose omission [Unknown]
  - Adverse reaction [Unknown]
